FAERS Safety Report 9521569 (Version 1)
Quarter: 2013Q1

REPORT INFORMATION
  Report Type: Spontaneous
  Country: US (occurrence: None)
  Receive Date: 20130305
  Receipt Date: 20130305
  Transmission Date: 20140127
  Serious: Yes (Life-Threatening, Other)
  Sender: FDA-Public Use
  Company Number: 163-21880-12072052

PATIENT
  Age: 62 Year
  Sex: Male
  Weight: 105.8 kg

DRUGS (8)
  1. REVLIMID (LENALIDOMIDE) (CAPSULES) [Suspect]
     Indication: PLASMA CELL MYELOMA
     Route: 048
     Dates: start: 201006
  2. B 12 (CYANOCOBALAMIN) [Concomitant]
  3. ASPIRIN (ACETYLSALICYLIC ACID) [Concomitant]
  4. MVI (MVI) [Concomitant]
  5. KCL (POTASSIUM CHLORIDE) [Concomitant]
  6. ACYCLOVIR (ACICLOVIR) (ACICLOVIR) [Concomitant]
  7. AMITRIPTYLINE (AMITRIPTYLINE) [Concomitant]
  8. MORPHINE (MORPHINE) (UNKNOWN) (MORPHINE) [Concomitant]

REACTIONS (1)
  - Neutropenia [None]
